FAERS Safety Report 24303599 (Version 1)
Quarter: 2024Q3

REPORT INFORMATION
  Report Type: Spontaneous
  Country: DE (occurrence: DE)
  Receive Date: 20240910
  Receipt Date: 20240910
  Transmission Date: 20241016
  Serious: Yes (Other)
  Sender: BAYER
  Company Number: DE-BAYER-2024A128644

PATIENT
  Age: 27 Year
  Sex: Female

DRUGS (1)
  1. KYLEENA [Suspect]
     Active Substance: LEVONORGESTREL
     Dosage: 17.5?G/DAY
     Route: 015
     Dates: start: 20240904

REACTIONS (2)
  - Seizure [None]
  - Procedural pain [None]

NARRATIVE: CASE EVENT DATE: 20240904
